FAERS Safety Report 5950203-X (Version None)
Quarter: 2008Q4

REPORT INFORMATION
  Report Type: 
  Country: None (occurrence: None)
  Receive Date: 20081112
  Receipt Date: 20081111
  Transmission Date: 20090506
  Serious: Yes (Other)
  Sender: FDA-Public Use
  Company Number: A0755807A

PATIENT
  Age: 48 Year
  Sex: Female

DRUGS (8)
  1. ADVAIR DISKUS 100/50 [Suspect]
     Indication: ASTHMA
     Dosage: 1PUFF TWICE PER DAY
     Route: 055
     Dates: start: 20000101, end: 20070101
  2. ADVAIR DISKUS 100/50 [Suspect]
     Dosage: 1PUFF TWICE PER DAY
     Route: 055
     Dates: start: 20070101
  3. COMBIVENT [Concomitant]
  4. ALBUTEROL [Concomitant]
  5. HYDROCODONE [Concomitant]
  6. METAMUCIL [Concomitant]
  7. PHAZYME [Concomitant]
  8. ZITHROMAX [Concomitant]

REACTIONS (2)
  - EYE PAIN [None]
  - PNEUMONIA [None]
